FAERS Safety Report 7584942-4 (Version None)
Quarter: 2011Q2

REPORT INFORMATION
  Report Type: 
  Country: None (occurrence: None)
  Receive Date: 20110630
  Receipt Date: 20110601
  Transmission Date: 20111010
  Serious: Yes (Other)
  Sender: FDA-Public Use
  Company Number: US-BAYER-2011-047870

PATIENT
  Sex: Female

DRUGS (1)
  1. AVELOX [Suspect]
     Indication: SINUSITIS
     Dosage: 400 MG, QD
     Route: 048

REACTIONS (5)
  - ANAPHYLACTIC REACTION [None]
  - RESPIRATORY DISTRESS [None]
  - DYSPNOEA [None]
  - RASH [None]
  - URTICARIA [None]
